FAERS Safety Report 14612837 (Version 3)
Quarter: 2018Q1

REPORT INFORMATION
  Report Type: Spontaneous
  Country: CH (occurrence: CH)
  Receive Date: 20180308
  Receipt Date: 20180329
  Transmission Date: 20180509
  Serious: Yes (Hospitalization, Disabling, Other)
  Sender: FDA-Public Use
  Company Number: CH-UCBSA-2018008686

PATIENT
  Sex: Male
  Weight: 87 kg

DRUGS (1)
  1. CIMZIA [Suspect]
     Active Substance: CERTOLIZUMAB PEGOL
     Indication: ANKYLOSING SPONDYLITIS
     Dosage: 200 (UNSPECIFIED UNITS), EV 2 WEEKS(QOW)
     Route: 058
     Dates: start: 20101015, end: 20170527

REACTIONS (3)
  - Liver abscess [Recovered/Resolved]
  - Sepsis [Recovered/Resolved]
  - Fusobacterium infection [Recovered/Resolved]

NARRATIVE: CASE EVENT DATE: 20170527
